FAERS Safety Report 5182681-0 (Version None)
Quarter: 2006Q4

REPORT INFORMATION
  Report Type: 
  Country: None (occurrence: None)
  Receive Date: 20061211
  Receipt Date: 20061128
  Transmission Date: 20070319
  Serious: No
  Sender: FDA-Public Use
  Company Number: E2090-00144-CLI-JP

PATIENT
  Age: 77 Year
  Sex: Male

DRUGS (2)
  1. ZONEGRAN [Suspect]
     Indication: PARKINSON'S DISEASE
     Dosage: SEE IMAGE
     Route: 048
     Dates: start: 20060122, end: 20060217
  2. ZONEGRAN [Suspect]
     Indication: PARKINSON'S DISEASE
     Dosage: SEE IMAGE
     Route: 048
     Dates: start: 20060218

REACTIONS (2)
  - ANAEMIA [None]
  - HAEMORRHAGE [None]
